FAERS Safety Report 17922087 (Version 1)
Quarter: 2020Q2

REPORT INFORMATION
  Report Type: Spontaneous
  Country: US (occurrence: US)
  Receive Date: 20200621
  Receipt Date: 20200621
  Transmission Date: 20200714
  Serious: No
  Sender: FDA-Public Use
  Company Number: None

PATIENT
  Age: 92 Year
  Sex: Male
  Weight: 97.8 kg

DRUGS (10)
  1. ATORVASTATIN 80 MG [Concomitant]
     Active Substance: ATORVASTATIN
     Dates: start: 20200606, end: 20200612
  2. PANTOPRAZOLE 40 MG DAILY [Concomitant]
     Dates: start: 20200604, end: 20200612
  3. ENOXAPARIN 40 MG SQ [Concomitant]
     Dates: start: 20200604, end: 20200612
  4. VANCOMYCIN 1 GM X 1 [Concomitant]
     Dates: start: 20200606, end: 20200606
  5. POTASSIUM CHLORIDE 40 MEQ Q4H [Concomitant]
     Dates: start: 20200607, end: 20200607
  6. ASPIRIN 81 MG DAILY [Concomitant]
     Dates: start: 20200606, end: 20200612
  7. CARVEDILOL 6.25 MG [Concomitant]
     Active Substance: CARVEDILOL
     Dates: start: 20200603, end: 20200612
  8. REMDESIVIR EUA SOLUTION [Suspect]
     Active Substance: REMDESIVIR
     Indication: COVID-19
     Route: 041
     Dates: start: 20200606, end: 20200609
  9. PIPERACILLIN/TAZOBACTAM 2.25G Q6H [Concomitant]
     Dates: start: 20200606, end: 20200612
  10. FUROSEMIDE 40 MG X 1 [Concomitant]
     Dates: start: 20200606, end: 20200606

REACTIONS (1)
  - Acute kidney injury [None]

NARRATIVE: CASE EVENT DATE: 20200609
